FAERS Safety Report 26061174 (Version 3)
Quarter: 2025Q4

REPORT INFORMATION
  Report Type: Spontaneous
  Country: CO (occurrence: CO)
  Receive Date: 20251118
  Receipt Date: 20251201
  Transmission Date: 20260118
  Serious: Yes (Death, Other)
  Sender: BAYER HEALTHCARE PHARMACEUTICALS INC.
  Company Number: CO-BAYER-2025A152552

PATIENT
  Age: 78 Year
  Sex: Male
  Weight: 80 kg

DRUGS (1)
  1. ULTRAVIST [Suspect]
     Active Substance: IOPROMIDE
     Indication: Scan adrenal gland
     Dosage: 100 ML, ONCE
     Route: 042
     Dates: start: 20251113, end: 20251113

REACTIONS (4)
  - Anaphylactic shock [Fatal]
  - Dyspnoea [Fatal]
  - Chest pain [Fatal]
  - Abdominal pain [Fatal]

NARRATIVE: CASE EVENT DATE: 20251113
